FAERS Safety Report 17897280 (Version 12)
Quarter: 2021Q2

REPORT INFORMATION
  Report Type: Report from Study
  Country: KR (occurrence: KR)
  Receive Date: 20200615
  Receipt Date: 20210504
  Transmission Date: 20210717
  Serious: Yes (Hospitalization)
  Sender: FDA-Public Use
  Company Number: KR-EISAI MEDICAL RESEARCH-EC-2020-075985

PATIENT
  Age: 57 Year
  Sex: Female
  Weight: 52 kg

DRUGS (11)
  1. PEMBROLIZUMAB. [Suspect]
     Active Substance: PEMBROLIZUMAB
     Indication: ENDOMETRIAL CANCER RECURRENT
     Route: 041
     Dates: start: 20200610, end: 20200610
  2. LENVATINIB [Suspect]
     Active Substance: LENVATINIB
     Indication: ENDOMETRIAL CANCER
     Route: 048
     Dates: start: 20200226, end: 20200610
  3. PEMBROLIZUMAB. [Suspect]
     Active Substance: PEMBROLIZUMAB
     Route: 041
     Dates: start: 20200702, end: 20200702
  4. PEMBROLIZUMAB. [Suspect]
     Active Substance: PEMBROLIZUMAB
     Indication: ENDOMETRIAL CANCER
     Route: 041
     Dates: start: 20200226, end: 20200520
  5. ACLOVA [Concomitant]
     Dates: start: 20200520, end: 20200630
  6. MOTILITONE [Concomitant]
     Active Substance: HERBALS
     Dates: start: 20200520, end: 20200603
  7. LENVATINIB [Suspect]
     Active Substance: LENVATINIB
     Indication: ENDOMETRIAL CANCER RECURRENT
     Route: 048
     Dates: start: 20200617, end: 20200714
  8. METHYLON [Concomitant]
     Active Substance: METHYLPREDNISOLONE
     Dates: start: 20200520, end: 20200630
  9. DIFUCO [Concomitant]
     Dates: start: 20200422, end: 20200701
  10. SYNTHYROXINE [Concomitant]
     Active Substance: LEVOTHYROXINE SODIUM
     Dates: start: 20200520, end: 20200818
  11. STOGAR [Concomitant]
     Active Substance: LAFUTIDINE
     Dates: start: 20200520, end: 20200630

REACTIONS (1)
  - Hypertension [Recovered/Resolved]

NARRATIVE: CASE EVENT DATE: 20200610
